FAERS Safety Report 16016681 (Version 1)
Quarter: 2019Q1

REPORT INFORMATION
  Report Type: Spontaneous
  Country: US (occurrence: US)
  Receive Date: 20190227
  Receipt Date: 20190227
  Transmission Date: 20190418
  Serious: Yes (Disabling)
  Sender: FDA-Public Use
  Company Number: None

PATIENT
  Age: 54 Year
  Sex: Female
  Weight: 84.82 kg

DRUGS (1)
  1. MIRENA [Suspect]
     Active Substance: LEVONORGESTREL

REACTIONS (9)
  - Hirsutism [None]
  - Depression [None]
  - Anxiety [None]
  - Fatigue [None]
  - Skin disorder [None]
  - Memory impairment [None]
  - Weight increased [None]
  - Procedural pain [None]
  - Menorrhagia [None]
